FAERS Safety Report 7048592-0 (Version None)
Quarter: 2010Q4

REPORT INFORMATION
  Report Type: 
  Country: None (occurrence: None)
  Receive Date: 20101018
  Receipt Date: 20101011
  Transmission Date: 20110411
  Serious: Yes (Other)
  Sender: FDA-Public Use
  Company Number: US-BAYER-201021575BCC

PATIENT
  Sex: Female
  Weight: 59 kg

DRUGS (1)
  1. ASPIRIN [Suspect]
     Indication: SELF INJURIOUS BEHAVIOUR
     Dosage: UNIT DOSE: 325 MG
     Route: 048
     Dates: start: 20101009

REACTIONS (1)
  - SELF INJURIOUS BEHAVIOUR [None]
